FAERS Safety Report 23078214 (Version 1)
Quarter: 2023Q4

REPORT INFORMATION
  Report Type: Spontaneous
  Country: GB (occurrence: GB)
  Receive Date: 20231018
  Receipt Date: 20231018
  Transmission Date: 20240110
  Serious: Yes (Disabling)
  Sender: FDA-Public Use
  Company Number: None

PATIENT
  Age: 68 Year
  Sex: Female
  Weight: 89 kg

DRUGS (14)
  1. BACLOFEN [Suspect]
     Active Substance: BACLOFEN
     Indication: Product used for unknown indication
     Dosage: 60 MILLIGRAM DAILY; UNIT DOSE: 20 MG, 3 TIMES A DAY , THERAPY END DATE : NASK
     Route: 048
     Dates: start: 20230314
  2. CLARITHROMYCIN [Concomitant]
     Active Substance: CLARITHROMYCIN
     Indication: Product used for unknown indication
     Dosage: 2 DOSAGE FORMS DAILY; UNIT DOSE : 1 DF, FREQUENCY : 1 IN 12 HOURS
     Dates: start: 20231008
  3. DIAZEPAM [Concomitant]
     Active Substance: DIAZEPAM
     Indication: Product used for unknown indication
     Dosage: 1 DOSAGE FORMS DAILY; AS PER YOUR PSYCHIATRIST, UNIT DOSE : 1 DF, OD
     Dates: start: 20160330
  4. DICLOFENAC DIETHYLAMINE [Concomitant]
     Active Substance: DICLOFENAC DIETHYLAMINE
     Indication: Product used for unknown indication
     Dosage: 3 DOSAGE FORMS DAILY; APPLY, UNIT DOSE : 1 DF, 3 TIMES A DAY
     Dates: start: 20150623
  5. DOCUSATE SODIUM [Concomitant]
     Active Substance: DOCUSATE SODIUM
     Indication: Product used for unknown indication
     Dosage: 200 MILLIGRAM DAILY; (10ML) IN THE MORNING AND 300MG (15ML)  A...UNIT DOSE: 200 MG,  OD
     Dates: start: 20230320
  6. DULOXETINE [Concomitant]
     Active Substance: DULOXETINE
     Indication: Product used for unknown indication
     Dosage: 1 DOSAGE FORMS DAILY; 1 EVERY DAY
     Dates: start: 20170504
  7. ESTRADIOL [Concomitant]
     Active Substance: ESTRADIOL
     Indication: Product used for unknown indication
     Dosage: AS PER GYNAE, FREQUENCY TIME : 1 DAY
     Dates: start: 20200407
  8. ESTRADIOL [Concomitant]
     Active Substance: ESTRADIOL
     Indication: Product used for unknown indication
     Dosage: APPLY, UNIT DOSE : 1 DF, FREQUENCY : 2 IN 1 WEEK
     Dates: start: 20220615
  9. HYDROMOL [Concomitant]
     Indication: Product used for unknown indication
     Dosage: APPLY IN THE BATH OR SHOWER, FREQUENCY TIME: 1 DAY
     Dates: start: 20180905
  10. SUMATRIPTAN SUCCINATE [Concomitant]
     Active Substance: SUMATRIPTAN SUCCINATE
     Indication: Product used for unknown indication
     Dosage: 2 DOSAGE FORMS DAILY; USE ONE TWICE A DAY AS DIRECTED
     Dates: start: 20211122
  11. MOVICOL [Concomitant]
     Active Substance: POLYETHYLENE GLYCOL 3350\POTASSIUM CHLORIDE\SODIUM BICARBONATE\SODIUM CHLORIDE
     Indication: Product used for unknown indication
     Dosage: ONE - TWO SACHETS DAILY
     Dates: start: 20221107
  12. PREGABALIN [Concomitant]
     Active Substance: PREGABALIN
     Indication: Product used for unknown indication
     Dosage: 1 DOSAGE FORMS DAILY; AT NIGHT, TITRATE UP WEEKLY AS DIRE...UNIT DOSE: 1 DF, OD
     Dates: start: 20231012
  13. LITHIUM [Concomitant]
     Active Substance: LITHIUM
     Indication: Product used for unknown indication
     Dosage: 1 DOSAGE FORMS DAILY; AS DIRECTED, UNIT DOSE : 1 DF, OD
     Dates: start: 20160831
  14. PROGESTERONE [Concomitant]
     Active Substance: PROGESTERONE
     Indication: Product used for unknown indication
     Dosage: 1 DOSAGE FORMS DAILY; AT BEDTIME DAYS 1-25 OF HRT CYCLE, UNIT DOSE : 1 DF, OD
     Dates: start: 20221005

REACTIONS (5)
  - Butterfly rash [Recovering/Resolving]
  - Mental status changes [Recovering/Resolving]
  - Cough [Recovering/Resolving]
  - Blister [Recovering/Resolving]
  - Withdrawal syndrome [Unknown]
